FAERS Safety Report 8675712 (Version 2)
Quarter: 2013Q4

REPORT INFORMATION
  Report Type: Report from Study
  Country: RO (occurrence: RO)
  Receive Date: 20120720
  Receipt Date: 20131106
  Transmission Date: 20140711
  Serious: Yes (Death)
  Sender: FDA-Public Use
  Company Number: RO-009507513-1207GBR006116

PATIENT
  Age: 59 Year
  Sex: Female

DRUGS (3)
  1. VICTRELIS [Suspect]
     Indication: CHRONIC HEPATITIS C
     Dosage: 2400 MG, QD
     Dates: start: 20120601, end: 20120714
  2. PEGINTRON [Concomitant]
     Indication: CHRONIC HEPATITIS C
     Dosage: 120 MICROGRAM, UNK
     Dates: start: 20120503, end: 20120713
  3. REBETOL [Concomitant]
     Indication: CHRONIC HEPATITIS C
     Dosage: 1000 MG, QD
     Dates: start: 20120503, end: 20120714

REACTIONS (1)
  - Death [Fatal]
